FAERS Safety Report 5798808-3 (Version None)
Quarter: 2008Q3

REPORT INFORMATION
  Report Type: 
  Country: None (occurrence: None)
  Receive Date: 20080702
  Receipt Date: 20080625
  Transmission Date: 20090109
  Serious: Yes (Death, Other)
  Sender: FDA-Public Use
  Company Number: RO-ABBOTT-08P-135-0459228-00

PATIENT
  Age: 14 Year

DRUGS (1)
  1. SEVOFLURANE [Suspect]
     Indication: ANAESTHESIA
     Dosage: NOT REPORTED

REACTIONS (2)
  - COMA [None]
  - HYPERTHERMIA MALIGNANT [None]
